FAERS Safety Report 7440321-1 (Version None)
Quarter: 2011Q2

REPORT INFORMATION
  Report Type: 
  Country: None (occurrence: None)
  Receive Date: 20110427
  Receipt Date: 20110415
  Transmission Date: 20111010
  Serious: No
  Sender: FDA-Public Use
  Company Number: US-JNJFOC-20110407364

PATIENT
  Sex: Male

DRUGS (5)
  1. CELEXA [Concomitant]
     Indication: DEPRESSION
     Route: 048
  2. INVEGA SUSTENNA [Suspect]
     Indication: SCHIZOAFFECTIVE DISORDER
     Route: 030
  3. COGENTIN [Concomitant]
     Route: 048
  4. PROLIXIN [Concomitant]
     Indication: SCHIZOAFFECTIVE DISORDER
     Route: 048
  5. DEPAKOTE [Concomitant]
     Indication: DRUG THERAPY
     Route: 048

REACTIONS (2)
  - DEVICE LEAKAGE [None]
  - INAPPROPRIATE SCHEDULE OF DRUG ADMINISTRATION [None]
